FAERS Safety Report 7410861-X (Version None)
Quarter: 2011Q1

REPORT INFORMATION
  Report Type: 
  Country: None (occurrence: None)
  Receive Date: 20110302
  Receipt Date: 20100707
  Transmission Date: 20110831
  Serious: Yes (Death)
  Sender: FDA-Public Use
  Company Number: 163-21880-10021216

PATIENT
  Age: 76 Year
  Sex: Male

DRUGS (2)
  1. REVLIMID [Suspect]
     Indication: MULTIPLE MYELOMA
     Dosage: 5 MG, 1 IN 1 D, PO
     Route: 048
     Dates: start: 20091123
  2. ASPIRIN [Concomitant]

REACTIONS (2)
  - RENAL FAILURE CHRONIC [None]
  - CEREBROVASCULAR ACCIDENT [None]
